FAERS Safety Report 15698445 (Version 1)
Quarter: 2018Q4

REPORT INFORMATION
  Report Type: Spontaneous
  Country: US (occurrence: US)
  Receive Date: 20181126
  Receipt Date: 20181126
  Transmission Date: 20190205
  Serious: Yes (Disabling, Other)
  Sender: FDA-Public Use
  Company Number: None

PATIENT
  Age: 69 Year
  Sex: Female
  Weight: 60.75 kg

DRUGS (1)
  1. POLYETHYLENE GLYCOL 3350. [Suspect]
     Active Substance: POLYETHYLENE GLYCOL 3350
     Indication: CONSTIPATION
     Dosage: ?          OTHER STRENGTH:17 GRAMS OR AS PRE;QUANTITY:1 CAPFULS;?
     Route: 048

REACTIONS (3)
  - Burning sensation [None]
  - Urinary incontinence [None]
  - Bladder injury [None]

NARRATIVE: CASE EVENT DATE: 20150602
